FAERS Safety Report 4850212-8 (Version None)
Quarter: 2005Q4

REPORT INFORMATION
  Report Type: 
  Country: None (occurrence: None)
  Receive Date: 20051123
  Receipt Date: 20050926
  Transmission Date: 20060501
  Serious: Yes (Disabling)
  Sender: FDA-Public Use
  Company Number: 2005110407

PATIENT
  Age: 83 Year
  Sex: Male

DRUGS (9)
  1. LIPITOR [Suspect]
     Indication: HYPERLIPIDAEMIA
     Dosage: 20 MG (20 MG, 1 IN 1 D), ORAL
     Route: 048
     Dates: start: 19990301, end: 20050801
  2. ULTRACET [Suspect]
     Indication: ARTHRALGIA
     Dosage: (3 IN 1 D), ORAL
     Route: 048
     Dates: start: 20050201, end: 20050801
  3. ALL OTHER THERAPEUTIC PRODUCTS (ALL OTHER THERAPEUTIC PRODUCTS) [Concomitant]
  4. ACTOS [Concomitant]
  5. ASPIRIN [Concomitant]
  6. PROSCAR [Concomitant]
  7. PREVACID [Concomitant]
  8. MECLIZINE [Concomitant]
  9. TAMSULOSIN HCL [Concomitant]

REACTIONS (4)
  - ARTHRALGIA [None]
  - DEAFNESS [None]
  - DIZZINESS [None]
  - MENIERE'S DISEASE [None]
